FAERS Safety Report 24786182 (Version 1)
Quarter: 2024Q4

REPORT INFORMATION
  Report Type: Spontaneous
  Country: US (occurrence: US)
  Receive Date: 20241229
  Receipt Date: 20241229
  Transmission Date: 20250115
  Serious: Yes (Other)
  Sender: RIGEL PHARMACEUTICALS
  Company Number: US-RIGEL Pharmaceuticals, INC-20241200146

PATIENT
  Age: 67 Year
  Sex: Male

DRUGS (1)
  1. TAVALISSE [Suspect]
     Active Substance: FOSTAMATINIB
     Indication: Haemorrhage
     Dosage: 100 MG, BID
     Route: 048
     Dates: start: 20241212

REACTIONS (9)
  - Cardiac operation [Unknown]
  - Lung operation [Unknown]
  - Vena cava filter insertion [Unknown]
  - Arthralgia [Unknown]
  - Discomfort [Unknown]
  - Heart rate irregular [Unknown]
  - Immunodeficiency [Unknown]
  - Off label use [Unknown]
  - Hypertension [Unknown]

NARRATIVE: CASE EVENT DATE: 20241212
